FAERS Safety Report 16113163 (Version 1)
Quarter: 2019Q1

REPORT INFORMATION
  Report Type: Spontaneous
  Country: FR (occurrence: FR)
  Receive Date: 20190325
  Receipt Date: 20190325
  Transmission Date: 20190418
  Serious: Yes (Hospitalization)
  Sender: FDA-Public Use
  Company Number: FR-PFIZER INC-2019123531

PATIENT
  Age: 20 Year
  Sex: Male

DRUGS (4)
  1. CANNABIS [Suspect]
     Active Substance: CANNABIS SATIVA SUBSP. INDICA TOP
     Indication: DRUG ABUSE
     Dosage: UNK
     Route: 065
  2. METHYLENEDIOXYMETHAMPHETAMINE [Suspect]
     Active Substance: MIDOMAFETAMINE
     Dosage: NOT PROVIDED
     Route: 065
  3. ALPRAZOLAM. [Suspect]
     Active Substance: ALPRAZOLAM
     Dosage: NOT PROVIDED
     Route: 065
  4. ALCOOL [Suspect]
     Active Substance: ALCOHOL
     Indication: ALCOHOL ABUSE
     Dosage: UNK
     Route: 048

REACTIONS (1)
  - Drug abuse [Not Recovered/Not Resolved]
